FAERS Safety Report 24390958 (Version 1)
Quarter: 2024Q4

REPORT INFORMATION
  Report Type: Spontaneous
  Country: IR (occurrence: IR)
  Receive Date: 20241003
  Receipt Date: 20241003
  Transmission Date: 20250115
  Serious: Yes (Other)
  Sender: NOVITIUM PHARMA
  Company Number: IR-NOVITIUMPHARMA-2024IRNVP01995

PATIENT
  Age: 31 Year
  Sex: Female

DRUGS (13)
  1. DEXAMETHASONE [Suspect]
     Active Substance: DEXAMETHASONE
     Indication: COVID-19
     Dosage: FOUR DOSES
     Route: 042
  2. ACYCLOVIR [Suspect]
     Active Substance: ACYCLOVIR
     Indication: Arrhythmia
  3. REMDESIVIR [Concomitant]
     Active Substance: REMDESIVIR
     Indication: COVID-19
  4. FENTANYL [Concomitant]
     Active Substance: FENTANYL
     Indication: Sedation
  5. MIDAZOLAM [Concomitant]
     Active Substance: MIDAZOLAM
     Indication: Sedation
     Route: 042
  6. AMPICILLIN [Concomitant]
     Active Substance: AMPICILLIN
     Indication: Arrhythmia
  7. CEFTRIAXONE [Concomitant]
     Active Substance: CEFTRIAXONE
     Indication: Arrhythmia
  8. VANCOMYCIN [Concomitant]
     Active Substance: VANCOMYCIN
     Indication: Arrhythmia
  9. METRONIDAZOLE [Concomitant]
     Active Substance: METRONIDAZOLE
     Indication: Arrhythmia
  10. METHYLPREDNISOLONE [Concomitant]
     Active Substance: METHYLPREDNISOLONE
     Indication: Arrhythmia
  11. ADENOSINE [Concomitant]
     Active Substance: ADENOSINE
     Indication: Arrhythmia
  12. MAGNESIUM SULFATE [Concomitant]
     Active Substance: MAGNESIUM SULFATE
     Indication: Arrhythmia
  13. METHOHEXITAL [Concomitant]
     Active Substance: METHOHEXITAL
     Indication: Arrhythmia

REACTIONS (3)
  - Posterior reversible encephalopathy syndrome [Unknown]
  - Off label use [Unknown]
  - Exposure during pregnancy [Unknown]
